FAERS Safety Report 12586504 (Version 19)
Quarter: 2020Q1

REPORT INFORMATION
  Report Type: Spontaneous
  Country: US (occurrence: US)
  Receive Date: 20160725
  Receipt Date: 20200319
  Transmission Date: 20200409
  Serious: Yes (Hospitalization, Other)
  Sender: FDA-Public Use
  Company Number: US-PFIZER INC-2016322975

PATIENT
  Age: 70 Year
  Sex: Female
  Weight: 73 kg

DRUGS (5)
  1. XELJANZ [Suspect]
     Active Substance: TOFACITINIB CITRATE
     Dosage: UNK
  2. XELJANZ [Suspect]
     Active Substance: TOFACITINIB CITRATE
     Dosage: 5 MG, 2X/DAY (ONE IN THE MORNING AFTER BREAKFAST AND ONE AT NIGHT BEFORE BED)
     Route: 048
     Dates: start: 20180220, end: 201802
  3. TYLENOL [Concomitant]
     Active Substance: ACETAMINOPHEN
     Dosage: UNK
  4. XELJANZ [Suspect]
     Active Substance: TOFACITINIB CITRATE
     Dosage: 5 MG, 2X/DAY
     Route: 048
  5. XELJANZ [Suspect]
     Active Substance: TOFACITINIB CITRATE
     Indication: RHEUMATOID ARTHRITIS
     Dosage: 5 MG, UNK

REACTIONS (17)
  - Nasopharyngitis [Recovered/Resolved]
  - Malaise [Unknown]
  - Constipation [Unknown]
  - Drug hypersensitivity [Unknown]
  - Back pain [Unknown]
  - Product dispensing error [Unknown]
  - Dysphonia [Unknown]
  - Oral candidiasis [Recovered/Resolved]
  - Asthenia [Unknown]
  - Weight decreased [Unknown]
  - Diarrhoea [Recovered/Resolved]
  - Dry skin [Unknown]
  - Pain [Unknown]
  - Sinus disorder [Unknown]
  - Pain in extremity [Unknown]
  - Drug intolerance [Unknown]
  - Gastrointestinal ulcer haemorrhage [Recovering/Resolving]

NARRATIVE: CASE EVENT DATE: 201705
